FAERS Safety Report 11211314 (Version 1)
Quarter: 2015Q2

REPORT INFORMATION
  Report Type: Spontaneous
  Country: US (occurrence: None)
  Receive Date: 20150619
  Receipt Date: 20150619
  Transmission Date: 20150821
  Serious: Yes (Hospitalization)
  Sender: FDA-Public Use
  Company Number: None

PATIENT
  Age: 87 Year
  Sex: Female
  Weight: 99.8 kg

DRUGS (23)
  1. COLACE [Concomitant]
     Active Substance: DOCUSATE SODIUM
  2. EFFEXOR [Concomitant]
     Active Substance: VENLAFAXINE HYDROCHLORIDE
  3. ZINCUTE [Concomitant]
  4. SYSTANE (HYPROMELLOSE 2910 (4000 MPA.S)) [Concomitant]
     Active Substance: HYPROMELLOSE 2910 (4000 MPA.S)
  5. PROTONIX [Concomitant]
     Active Substance: PANTOPRAZOLE SODIUM
  6. RISPERDAL [Concomitant]
     Active Substance: RISPERIDONE
  7. ASCORBIC ACID. [Concomitant]
     Active Substance: ASCORBIC ACID
  8. NEURONTIN [Concomitant]
     Active Substance: GABAPENTIN
  9. LACTULOSE. [Concomitant]
     Active Substance: LACTULOSE
  10. VID D [Concomitant]
  11. LEXAPRO [Concomitant]
     Active Substance: ESCITALOPRAM OXALATE
  12. ATIVAN [Concomitant]
     Active Substance: LORAZEPAM
  13. AMIKACIN [Suspect]
     Active Substance: AMIKACIN
     Indication: URINARY TRACT INFECTION
     Dosage: VIA VENOUS CATHETER; RECENT
  14. LISINOPRIL. [Suspect]
     Active Substance: LISINOPRIL
     Indication: HYPERTENSION
     Route: 048
  15. ECOTRIN [Concomitant]
     Active Substance: ASPIRIN
  16. DICLOFENAC [Concomitant]
     Active Substance: DICLOFENAC
  17. LASIX [Concomitant]
     Active Substance: FUROSEMIDE
  18. SYNTHROID [Concomitant]
     Active Substance: LEVOTHYROXINE SODIUM
  19. LINZESS [Concomitant]
     Active Substance: LINACLOTIDE
  20. TRAMADOL [Concomitant]
     Active Substance: TRAMADOL
  21. SEPTRA DS [Suspect]
     Active Substance: SULFAMETHOXAZOLE\TRIMETHOPRIM
     Indication: URINARY TRACT INFECTION
     Route: 048
  22. FERROUS GLUCONATE [Concomitant]
     Active Substance: FERROUS GLUCONATE
  23. LOPRESSOR [Concomitant]
     Active Substance: METOPROLOL TARTRATE

REACTIONS (3)
  - Encephalopathy [None]
  - Acute kidney injury [None]
  - Hyperkalaemia [None]

NARRATIVE: CASE EVENT DATE: 20141218
